FAERS Safety Report 4891172-3 (Version None)
Quarter: 2006Q1

REPORT INFORMATION
  Report Type: 
  Country: None (occurrence: None)
  Receive Date: 20060125
  Receipt Date: 20060113
  Transmission Date: 20060701
  Serious: Yes (Hospitalization)
  Sender: FDA-Public Use
  Company Number: US-GLAXOSMITHKLINE-A0589466A

PATIENT
  Age: 38 Year
  Sex: Female
  Weight: 148.6 kg

DRUGS (3)
  1. SALMETEROL + FLUTICASONE [Suspect]
     Indication: ASTHMA
     Route: 055
     Dates: start: 20060105, end: 20060111
  2. LISINOPRIL [Concomitant]
  3. HYDROCHLOROTHIAZIDE [Concomitant]

REACTIONS (5)
  - ARTERIOSPASM CORONARY [None]
  - CARDIOMYOPATHY [None]
  - CHEST PAIN [None]
  - DIZZINESS [None]
  - VASOSPASM [None]
